FAERS Safety Report 5580507-4 (Version None)
Quarter: 2008Q1

REPORT INFORMATION
  Report Type: 
  Country: None (occurrence: None)
  Receive Date: 20080103
  Receipt Date: 20071221
  Transmission Date: 20080703
  Serious: Yes (Other)
  Sender: FDA-Public Use
  Company Number: US-ELI_LILLY_AND_COMPANY-US200711000938

PATIENT
  Sex: Female

DRUGS (3)
  1. HUMALOG [Suspect]
     Dosage: UNK, UNK
     Dates: start: 20071104, end: 20071101
  2. HUMULIN R [Suspect]
  3. HUMULIN N [Suspect]

REACTIONS (7)
  - BLINDNESS [None]
  - BLOOD GLUCOSE DECREASED [None]
  - GAIT DISTURBANCE [None]
  - GLYCOSYLATED HAEMOGLOBIN INCREASED [None]
  - HYPOAESTHESIA FACIAL [None]
  - VISUAL ACUITY REDUCED [None]
  - VISUAL DISTURBANCE [None]
